FAERS Safety Report 4410691-7 (Version None)
Quarter: 2004Q3

REPORT INFORMATION
  Report Type: 
  Country: None (occurrence: None)
  Receive Date: 20040726
  Receipt Date: 20040712
  Transmission Date: 20050211
  Serious: Yes (Hospitalization)
  Sender: FDA-Public Use
  Company Number: 2004044914

PATIENT
  Age: 78 Year
  Sex: Female
  Weight: 41 kg

DRUGS (11)
  1. UNASYN [Suspect]
     Indication: PNEUMONIA
     Dosage: 3 GRAM (1.5 GRAM, 2 IN 1 D), INTRAVENOUS
     Route: 042
     Dates: start: 20040529, end: 20040602
  2. AMINOPHYLLIN [Concomitant]
  3. BETAMETHASONE [Concomitant]
  4. CANDESARTAN CILEXETIL (CANDESARTAN CILEXETIL) [Concomitant]
  5. AMLODIPINE BESYLATE [Concomitant]
  6. TULOBUTEROL HYDROCHLORIDE (TOLUBUTEROL HYDROCHLORIDE) [Concomitant]
  7. WILD CHERRY BARK (WILD CHERRY BARK) [Concomitant]
  8. METHYLEPHEDRINE HYDROCHLORIDE-DL (METHYLEPHEDRINE HYDROCHLORIDE-DL) [Concomitant]
  9. AMBROXOL HYDROCHLORIDE (AMBROXOL HYDROCHLORIDE) [Concomitant]
  10. LYSOZYME (LYSOZYME) [Concomitant]
  11. CARBOCISTEINE (CARBOCISTEINE) [Concomitant]

REACTIONS (5)
  - ALANINE AMINOTRANSFERASE INCREASED [None]
  - ASPARTATE AMINOTRANSFERASE INCREASED [None]
  - BLOOD ALKALINE PHOSPHATASE INCREASED [None]
  - BLOOD LACTATE DEHYDROGENASE INCREASED [None]
  - GAMMA-GLUTAMYLTRANSFERASE INCREASED [None]
